FAERS Safety Report 17396478 (Version 3)
Quarter: 2020Q1

REPORT INFORMATION
  Report Type: Spontaneous
  Country: US (occurrence: US)
  Receive Date: 20200210
  Receipt Date: 20200326
  Transmission Date: 20200409
  Serious: Yes (Other)
  Sender: FDA-Public Use
  Company Number: US-PFIZER INC-2020052675

PATIENT
  Age: 62 Year
  Sex: Female

DRUGS (1)
  1. XELJANZ [Suspect]
     Active Substance: TOFACITINIB CITRATE
     Indication: RHEUMATOID ARTHRITIS
     Dosage: 5 MG, 2X/DAY
     Route: 048
     Dates: start: 201911

REACTIONS (12)
  - Rheumatoid arthritis [Recovering/Resolving]
  - Product dose omission [Unknown]
  - Fatigue [Unknown]
  - Red cell distribution width increased [Unknown]
  - Depressed mood [Unknown]
  - Feeling abnormal [Unknown]
  - Red blood cell count decreased [Unknown]
  - Haematocrit decreased [Unknown]
  - Pain in extremity [Recovering/Resolving]
  - Protein total decreased [Unknown]
  - White blood cell count decreased [Unknown]
  - Blood triglycerides increased [Unknown]
